FAERS Safety Report 21327492 (Version 2)
Quarter: 2022Q4

REPORT INFORMATION
  Report Type: Spontaneous
  Country: US (occurrence: US)
  Receive Date: 20220913
  Receipt Date: 20221014
  Transmission Date: 20230113
  Serious: Yes (Other)
  Sender: FDA-Public Use
  Company Number: US-MYLANLABS-2022M1092836

PATIENT
  Age: 19 Year
  Sex: Female

DRUGS (5)
  1. CYSTAGON [Suspect]
     Active Substance: CYSTEAMINE BITARTRATE
     Indication: Cystinosis
     Dosage: 350 MILLIGRAM, BID (350 MG AND 400 MG, BID, ORA))
     Route: 048
     Dates: start: 20020116
  2. CYSTAGON [Suspect]
     Active Substance: CYSTEAMINE BITARTRATE
     Dosage: 450 MILLIGRAM, BID
     Route: 048
     Dates: start: 20020116, end: 202201
  3. CYSTAGON [Suspect]
     Active Substance: CYSTEAMINE BITARTRATE
     Dosage: 8 DOSAGE FORM, QID
     Route: 048
     Dates: start: 20020117, end: 2022
  4. CYSTAGON [Suspect]
     Active Substance: CYSTEAMINE BITARTRATE
     Dosage: 450 MILLIGRAM, QID
     Route: 048
     Dates: start: 202111, end: 202111
  5. CYSTAGON [Suspect]
     Active Substance: CYSTEAMINE BITARTRATE
     Dosage: 50 MILLIGRAM
     Route: 048
     Dates: start: 20211130

REACTIONS (14)
  - Neuropathy peripheral [Unknown]
  - Tachycardia [Unknown]
  - Insomnia [Unknown]
  - Parosmia [Unknown]
  - Muscle spasms [Unknown]
  - Mood altered [Unknown]
  - Impaired quality of life [Unknown]
  - Rash pruritic [Unknown]
  - Abdominal discomfort [Unknown]
  - Hair colour changes [Unknown]
  - Overdose [Unknown]
  - Intentional product use issue [Unknown]
  - Nightmare [Unknown]
  - Diarrhoea [Unknown]

NARRATIVE: CASE EVENT DATE: 20180620
